FAERS Safety Report 9751883 (Version 1)
Quarter: 2013Q4

REPORT INFORMATION
  Report Type: Report from Study
  Country: US (occurrence: US)
  Receive Date: 20131213
  Receipt Date: 20131213
  Transmission Date: 20140711
  Serious: Yes (Hospitalization)
  Sender: FDA-Public Use
  Company Number: US-BRISTOL-MYERS SQUIBB COMPANY-19889401

PATIENT
  Age: 61 Year
  Sex: Male

DRUGS (2)
  1. CARBOPLATIN [Suspect]
     Indication: BREAST CANCER METASTATIC
     Dosage: 1DF=6AUC?6 DAY 3 OF 21 DAY CYCLE
     Route: 042
     Dates: start: 20131023
  2. PACLITAXEL [Suspect]
     Indication: BREAST CANCER METASTATIC
     Dosage: DAY 3 OF 21 DAY CYCLE
     Route: 042
     Dates: start: 20131023

REACTIONS (1)
  - Diverticulitis [Recovered/Resolved]
